FAERS Safety Report 19150183 (Version 1)
Quarter: 2021Q2

REPORT INFORMATION
  Report Type: Report from Study
  Country: US (occurrence: US)
  Receive Date: 20210417
  Receipt Date: 20210417
  Transmission Date: 20210717
  Serious: Yes (Other)
  Sender: FDA-Public Use
  Company Number: US-UCBSA-2021016210

PATIENT
  Age: 56 Year
  Sex: Female

DRUGS (1)
  1. LEVETIRACETAM. [Suspect]
     Active Substance: LEVETIRACETAM
     Indication: SEIZURE
     Dosage: 1500 MILLIGRAM, 2X/DAY (BID)

REACTIONS (8)
  - Seizure [Not Recovered/Not Resolved]
  - Gait disturbance [Not Recovered/Not Resolved]
  - Depression [Not Recovered/Not Resolved]
  - Feeling abnormal [Not Recovered/Not Resolved]
  - Adverse event following immunisation [Not Recovered/Not Resolved]
  - COVID-19 immunisation [Unknown]
  - COVID-19 [Not Recovered/Not Resolved]
  - Anxiety [Not Recovered/Not Resolved]

NARRATIVE: CASE EVENT DATE: 202008
